FAERS Safety Report 8582511-0 (Version None)
Quarter: 2012Q3

REPORT INFORMATION
  Report Type: 
  Country: None (occurrence: None)
  Receive Date: 20120809
  Receipt Date: 20120802
  Transmission Date: 20120928
  Serious: Yes (Hospitalization)
  Sender: FDA-Public Use
  Company Number: CZ-ROCHE-1090395

PATIENT
  Sex: Female
  Weight: 93 kg

DRUGS (7)
  1. HERCEPTIN [Suspect]
     Indication: BREAST CANCER
     Dosage: DATE OF LAST DOSE PRIOR TO SAE: 04/JUL/2012
     Route: 042
     Dates: start: 20110804
  2. LETROX [Concomitant]
  3. ASPIRIN [Concomitant]
  4. CALCIUM [Concomitant]
  5. SPASMED [Concomitant]
  6. SIMVASTATIN [Concomitant]
  7. PERTUZUMAB [Suspect]
     Indication: BREAST CANCER
     Dosage: DATE OF LAST DOSE PRIOR TO SAE: 4/JUL/2012
     Route: 042
     Dates: start: 20110803

REACTIONS (1)
  - ABDOMINAL HERNIA [None]
